FAERS Safety Report 18931683 (Version 2)
Quarter: 2021Q1

REPORT INFORMATION
  Report Type: Other
  Country: AT (occurrence: AT)
  Receive Date: 20210224
  Receipt Date: 20210304
  Transmission Date: 20210420
  Serious: Yes (Hospitalization)
  Sender: FDA-Public Use
  Company Number: AT-ROCHE-2771993

PATIENT
  Age: 64 Year
  Sex: Male
  Weight: 83 kg

DRUGS (16)
  1. ATEZOLIZUMAB. [Suspect]
     Active Substance: ATEZOLIZUMAB
     Indication: SMALL CELL LUNG CANCER EXTENSIVE STAGE
     Dosage: DATE OF MOST RECENT DOSE OF ATEZOLIZUMAB PRIOR TO SAE ONSET 03/FEB/2021.
     Route: 041
     Dates: start: 20210113
  2. ONDANSETRON [Concomitant]
     Active Substance: ONDANSETRON
     Indication: PROPHYLAXIS
     Dates: start: 20210113, end: 20210115
  3. DORMICUM [Concomitant]
     Indication: PROPHYLAXIS
     Dates: start: 20210202, end: 20210202
  4. DEXAMETHASONE. [Concomitant]
     Active Substance: DEXAMETHASONE
     Indication: PROPHYLAXIS
     Dates: start: 20210112, end: 20210116
  5. EXFORGE [Concomitant]
     Active Substance: AMLODIPINE BESYLATE\VALSARTAN
     Indication: HYPERTENSION
     Dates: start: 20160829
  6. PACLITAXEL. [Suspect]
     Active Substance: PACLITAXEL
     Indication: SMALL CELL LUNG CANCER EXTENSIVE STAGE
     Route: 065
  7. DIOVAN [Concomitant]
     Active Substance: VALSARTAN
     Indication: HYPERTENSION
     Dates: start: 20191205
  8. ARANESP [Concomitant]
     Active Substance: DARBEPOETIN ALFA
     Indication: ANAEMIA
     Dates: start: 20210206, end: 20210206
  9. PROPOFOL. [Concomitant]
     Active Substance: PROPOFOL
     Indication: PROPHYLAXIS
     Dates: start: 20210202, end: 20210202
  10. CARBOPLATIN. [Suspect]
     Active Substance: CARBOPLATIN
     Indication: SMALL CELL LUNG CANCER EXTENSIVE STAGE
     Route: 065
  11. ATORVASTATIN [Concomitant]
     Active Substance: ATORVASTATIN
     Indication: HYPERLIPIDAEMIA
     Dates: start: 20160823
  12. MOLAXOLE [Concomitant]
     Active Substance: POLYETHYLENE GLYCOL 3350\POTASSIUM CHLORIDE\SODIUM BICARBONATE\SODIUM CHLORIDE
     Indication: CONSTIPATION
     Dates: start: 20210216
  13. ONDANSETRON [Concomitant]
     Active Substance: ONDANSETRON
     Dates: start: 20210203, end: 20210205
  14. DEXAMETHASONE. [Concomitant]
     Active Substance: DEXAMETHASONE
     Dates: start: 20210203, end: 20210205
  15. NEULASTA [Concomitant]
     Active Substance: PEGFILGRASTIM
     Indication: NEUTROPENIA
     Dates: start: 20210206, end: 20210206
  16. THROMBO ASS [Concomitant]
     Active Substance: ASPIRIN
     Indication: HYPERTENSION
     Dates: start: 20160823

REACTIONS (1)
  - Abdominal pain upper [Recovered/Resolved]

NARRATIVE: CASE EVENT DATE: 20210212
